FAERS Safety Report 11385886 (Version 1)
Quarter: 2015Q3

REPORT INFORMATION
  Report Type: Spontaneous
  Country: US (occurrence: None)
  Receive Date: 20150813
  Receipt Date: 20150813
  Transmission Date: 20151125
  Serious: Yes (Hospitalization)
  Sender: FDA-Public Use
  Company Number: None

PATIENT
  Sex: Male
  Weight: 101.1 kg

DRUGS (1)
  1. BYDUREON [Suspect]
     Active Substance: EXENATIDE
     Indication: TYPE 2 DIABETES MELLITUS
     Dosage: 2MG  WEEKLY SUBCUTANEOUS
     Route: 058
     Dates: start: 201505

REACTIONS (4)
  - Injection site mass [None]
  - Inflammation [None]
  - Foreign body reaction [None]
  - Fat necrosis [None]
